FAERS Safety Report 11784075 (Version 1)
Quarter: 2015Q4

REPORT INFORMATION
  Report Type: Spontaneous
  Country: US (occurrence: US)
  Receive Date: 20151128
  Receipt Date: 20151128
  Transmission Date: 20160305
  Serious: No
  Sender: FDA-Public Use
  Company Number: US-NOVEN PHARMACEUTICALS, INC.-US2015000857

PATIENT
  Age: 64 Year
  Sex: Female

DRUGS (4)
  1. L-THYROXIN [Concomitant]
     Active Substance: LEVOTHYROXINE SODIUM
     Indication: THYROID DISORDER
  2. MINIVELLE [Suspect]
     Active Substance: ESTRADIOL
     Indication: NERVOUS SYSTEM DISORDER
  3. MINIVELLE [Suspect]
     Active Substance: ESTRADIOL
     Indication: VULVOVAGINAL DRYNESS
     Dosage: 0.05 MG, QD
     Route: 062
     Dates: start: 2014
  4. PROGESTERONE. [Concomitant]
     Active Substance: PROGESTERONE
     Route: 048

REACTIONS (4)
  - Drug ineffective [Unknown]
  - Drug dose omission [Recovered/Resolved]
  - Off label use [Not Recovered/Not Resolved]
  - Product quality issue [Unknown]

NARRATIVE: CASE EVENT DATE: 2014
